FAERS Safety Report 6762637-4 (Version None)
Quarter: 2010Q2

REPORT INFORMATION
  Report Type: 
  Country: None (occurrence: None)
  Receive Date: 20100427
  Receipt Date: 20100427
  Transmission Date: 20101027
  Serious: Yes (Other)
  Sender: FDA-Public Use
  Company Number: 302719998-2010-0004

PATIENT
  Age: 56 Year
  Sex: Female

DRUGS (2)
  1. TIBIALIS ANTERIOR TENDON [Suspect]
  2. 8X10 MM SCREW [Concomitant]

REACTIONS (5)
  - CULTURE POSITIVE [None]
  - POST PROCEDURAL INFECTION [None]
  - STAPHYLOCOCCAL INFECTION [None]
  - SURGICAL PROCEDURE REPEATED [None]
  - TENDON GRAFT [None]
